FAERS Safety Report 25825496 (Version 1)
Quarter: 2025Q3

REPORT INFORMATION
  Report Type: Spontaneous
  Country: EU (occurrence: EU)
  Receive Date: 20250919
  Receipt Date: 20250919
  Transmission Date: 20251020
  Serious: Yes (Other)
  Sender: HARMONY BIOSCIENCES
  Company Number: EU-HARMONY BIOSCIENCES-2025HMY02011

PATIENT

DRUGS (3)
  1. PITOLISANT [Suspect]
     Active Substance: PITOLISANT
     Indication: Narcolepsy
     Route: 065
  2. MODAFINIL [Suspect]
     Active Substance: MODAFINIL
     Indication: Narcolepsy
     Route: 065
  3. SODIUM OXYBATE [Suspect]
     Active Substance: SODIUM OXYBATE
     Indication: Narcolepsy
     Route: 065

REACTIONS (1)
  - Lung cancer metastatic [None]

NARRATIVE: CASE EVENT DATE: 20250101
